FAERS Safety Report 20156757 (Version 1)
Quarter: 2021Q4

REPORT INFORMATION
  Report Type: Other
  Country: None (occurrence: US)
  Receive Date: 20211207
  Receipt Date: 20211207
  Transmission Date: 20220303
  Serious: Yes (Hospitalization)
  Sender: FDA-Public Use
  Company Number: US-B.Braun Medical Inc.-2122759

PATIENT
  Sex: Male

DRUGS (1)
  1. DEXTROSE\POTASSIUM CHLORIDE [Suspect]
     Active Substance: DEXTROSE\POTASSIUM CHLORIDE

REACTIONS (1)
  - Hyperkalaemia [Recovered/Resolved]
